FAERS Safety Report 16786240 (Version 1)
Quarter: 2019Q3

REPORT INFORMATION
  Report Type: Spontaneous
  Country: SE (occurrence: SE)
  Receive Date: 20190909
  Receipt Date: 20190909
  Transmission Date: 20191005
  Serious: Yes (Hospitalization)
  Sender: FDA-Public Use
  Company Number: SE-PFIZER INC-2019383806

PATIENT
  Sex: Female

DRUGS (3)
  1. SERTRALINE HCL [Suspect]
     Active Substance: SERTRALINE HYDROCHLORIDE
     Dosage: 300 MG, UNK (6 PIECES 50 MG)
     Route: 048
     Dates: start: 20190416
  2. PROPAVAN [Suspect]
     Active Substance: PROPIOMAZINE
     Dosage: 150 MG, UNK (6 PIECES 25 MG)
     Dates: start: 20190416
  3. LERGIGAN [PROMETHAZINE HYDROCHLORIDE] [Suspect]
     Active Substance: PROMETHAZINE HYDROCHLORIDE
     Dosage: 150 MG, UNK (6 PIECES 25 MG)
     Route: 048
     Dates: start: 20190416

REACTIONS (2)
  - Intentional self-injury [Unknown]
  - Intentional overdose [Unknown]

NARRATIVE: CASE EVENT DATE: 20190416
